FAERS Safety Report 9218766 (Version 1)
Quarter: 2013Q2

REPORT INFORMATION
  Report Type: Spontaneous
  Country: US (occurrence: None)
  Receive Date: 20130405
  Receipt Date: 20130405
  Transmission Date: 20140414
  Serious: Yes (Other)
  Sender: FDA-Public Use
  Company Number: None

PATIENT
  Age: 40 Year
  Sex: Male
  Weight: 77.11 kg

DRUGS (2)
  1. TRUVADA [Suspect]
     Dosage: 1 DAILY
     Dates: start: 20130220, end: 20130404
  2. ISENTRESS [Suspect]
     Dosage: 2 DAYLY
     Dates: start: 20130220, end: 20130404

REACTIONS (4)
  - Fluid retention [None]
  - Muscle spasms [None]
  - Local swelling [None]
  - Varicose vein [None]
